FAERS Safety Report 9435067 (Version 1)
Quarter: 2013Q3

REPORT INFORMATION
  Report Type: Spontaneous
  Country: NL (occurrence: NL)
  Receive Date: 20130801
  Receipt Date: 20130801
  Transmission Date: 20140515
  Serious: Yes (Death)
  Sender: FDA-Public Use
  Company Number: NL-AMGEN-NLDSP2013053190

PATIENT
  Age: 60 Year
  Sex: Female

DRUGS (7)
  1. XGEVA [Suspect]
     Indication: PRODUCT USED FOR UNKNOWN INDICATION
     Dosage: 120 MG/1.7 ML, UNK
     Route: 065
     Dates: start: 20130503
  2. CALCI CHEW D3 [Concomitant]
     Dosage: 500 MG/400 IE, UNK
  3. DEXAMETHASONE [Concomitant]
     Dosage: 40 MG, CAPSULE
     Route: 048
  4. OMEPRAZ [Concomitant]
     Dosage: 20 MG, CAPSULE
     Route: 048
  5. XELODA [Concomitant]
     Dosage: 500 MG, TABLET
     Route: 048
  6. OXAZEPAM [Concomitant]
     Dosage: 10 MG, TABLET
     Route: 048
  7. TEMAZEPAM [Concomitant]
     Dosage: 20 MG, CAPSULE
     Route: 048

REACTIONS (1)
  - Death [Fatal]
